FAERS Safety Report 6272637-9 (Version None)
Quarter: 2009Q3

REPORT INFORMATION
  Report Type: 
  Country: None (occurrence: None)
  Receive Date: 20090716
  Receipt Date: 20090716
  Transmission Date: 20100115
  Serious: Yes (Life-Threatening, Hospitalization)
  Sender: FDA-Public Use
  Company Number: None

PATIENT
  Age: 72 Year
  Sex: Male

DRUGS (14)
  1. CYTARABINE [Suspect]
     Indication: ACUTE MYELOID LEUKAEMIA
     Dosage: 20 MG/M2, DAY, SUBCUTANEOUS
     Route: 058
     Dates: start: 20090504, end: 20090513
  2. CYTARABINE [Suspect]
     Indication: ACUTE MYELOID LEUKAEMIA
     Dosage: 20 MG/M2, DAY, SUBCUTANEOUS
     Route: 058
     Dates: start: 20090608
  3. PREDNISOLONE [Concomitant]
  4. OMEPRAZOLE [Concomitant]
  5. (ASPARCAM /01580901/) [Concomitant]
  6. (ETAMSILATE) [Concomitant]
  7. ENALAPRIL MALEATE [Concomitant]
  8. AMINOCAPROIC ACID [Concomitant]
  9. CARTEOLOL HYDROCHLORIDE [Concomitant]
  10. GLYCERYL TRINITRATE) [Concomitant]
  11. NIFEDIPINE [Concomitant]
  12. KETOPROFEN [Concomitant]
  13. (TRAMADOL) [Concomitant]
  14. .. [Concomitant]

REACTIONS (3)
  - CARDIOVASCULAR DISORDER [None]
  - MYOCARDIAL INFARCTION [None]
  - MYOCARDIAL ISCHAEMIA [None]
